FAERS Safety Report 19400161 (Version 1)
Quarter: 2021Q2

REPORT INFORMATION
  Report Type: Spontaneous
  Country: DE (occurrence: DE)
  Receive Date: 20210610
  Receipt Date: 20210610
  Transmission Date: 20210717
  Serious: Yes (Hospitalization)
  Sender: FDA-Public Use
  Company Number: DE-PFIZER INC-2021633268

PATIENT
  Age: 52 Year
  Sex: Male
  Weight: 84 kg

DRUGS (5)
  1. BEVACIZUMAB. [Suspect]
     Active Substance: BEVACIZUMAB
     Dosage: ACCORDING TO SCHEDULE
  2. CALCIUM FOLINATE [Suspect]
     Active Substance: LEUCOVORIN CALCIUM
     Dosage: ACCORDING TO SCHEDULE
  3. ATENOLOL. [Concomitant]
     Active Substance: ATENOLOL
     Dosage: 50 MG, 3X/DAY, 3?0?0?0
  4. OXALIPLATIN. [Suspect]
     Active Substance: OXALIPLATIN
     Dosage: ACCORDING TO SCHEDULE
  5. FLUOROURACIL. [Suspect]
     Active Substance: FLUOROURACIL
     Dosage: ACCORDING TO SCHEDULE

REACTIONS (5)
  - Cough [Not Recovered/Not Resolved]
  - Disease recurrence [Not Recovered/Not Resolved]
  - Vomiting [Not Recovered/Not Resolved]
  - Haemoptysis [Not Recovered/Not Resolved]
  - Haematemesis [Not Recovered/Not Resolved]
